FAERS Safety Report 11680390 (Version 2)
Quarter: 2015Q4

REPORT INFORMATION
  Report Type: Spontaneous
  Country: US (occurrence: US)
  Receive Date: 20151027
  Receipt Date: 20151104
  Transmission Date: 20160304
  Serious: No
  Sender: FDA-Public Use
  Company Number: US-ELI_LILLY_AND_COMPANY-US201007002640

PATIENT
  Age: 82 Year
  Sex: Female

DRUGS (6)
  1. FORTEO [Suspect]
     Active Substance: TERIPARATIDE
     Dosage: 20 UG, DAILY (1/D)
  2. FORTEO [Suspect]
     Active Substance: TERIPARATIDE
     Dosage: 20 UG, DAILY (1/D)
  3. FORTEO [Suspect]
     Active Substance: TERIPARATIDE
     Dosage: 20 UG, DAILY (1/D)
  4. FORTEO [Suspect]
     Active Substance: TERIPARATIDE
     Indication: OSTEOPOROSIS
     Dosage: 20 UG, DAILY (1/D)
     Dates: start: 201007
  5. FORTEO [Suspect]
     Active Substance: TERIPARATIDE
     Dosage: 20 UG, DAILY (1/D)
  6. FORTEO [Suspect]
     Active Substance: TERIPARATIDE
     Dosage: 20 UG, DAILY (1/D)
     Dates: end: 20110124

REACTIONS (50)
  - Surgery [Unknown]
  - Disturbance in attention [Unknown]
  - Photopsia [Unknown]
  - Hypoaesthesia [Not Recovered/Not Resolved]
  - Feeling hot [Unknown]
  - Influenza [Not Recovered/Not Resolved]
  - Muscular weakness [Unknown]
  - Gastrointestinal pain [Unknown]
  - Somnolence [Unknown]
  - Gait disturbance [Unknown]
  - Bone disorder [Unknown]
  - Pain in jaw [Unknown]
  - Swelling [Unknown]
  - Abdominal pain upper [Unknown]
  - Arthropathy [Unknown]
  - Poor dental condition [Unknown]
  - Injection site bruising [Not Recovered/Not Resolved]
  - Chest pain [Unknown]
  - Pain in extremity [Unknown]
  - Hyperhidrosis [Unknown]
  - Chills [Unknown]
  - Mobility decreased [Unknown]
  - Limb discomfort [Unknown]
  - Bone pain [Unknown]
  - Growing pains [Unknown]
  - Injection site injury [Unknown]
  - Diarrhoea [Unknown]
  - Epistaxis [Unknown]
  - Aphasia [Unknown]
  - Fall [Unknown]
  - Foot deformity [Unknown]
  - Limb discomfort [Not Recovered/Not Resolved]
  - Hallucination, auditory [Unknown]
  - Sticky skin [Unknown]
  - Accidental overdose [Unknown]
  - Dyspnoea [Not Recovered/Not Resolved]
  - Muscle spasms [Unknown]
  - Malaise [Unknown]
  - Feeling cold [Unknown]
  - Contusion [Unknown]
  - Asthenia [Unknown]
  - Headache [Unknown]
  - Pyrexia [Unknown]
  - Abdominal discomfort [Unknown]
  - Increased tendency to bruise [Unknown]
  - Pain [Unknown]
  - Fear [Unknown]
  - Dyspepsia [Unknown]
  - Insomnia [Unknown]
  - Nausea [Not Recovered/Not Resolved]

NARRATIVE: CASE EVENT DATE: 20100708
